FAERS Safety Report 14935657 (Version 1)
Quarter: 2018Q2

REPORT INFORMATION
  Report Type: Spontaneous
  Country: FR (occurrence: FR)
  Receive Date: 20180524
  Receipt Date: 20180524
  Transmission Date: 20180711
  Serious: Yes (Other)
  Sender: FDA-Public Use
  Company Number: FR-GILEAD-2018-0340323

PATIENT
  Age: 66 Year
  Sex: Male
  Weight: 80 kg

DRUGS (17)
  1. HYPERIUM [Concomitant]
     Active Substance: RILMENIDINE PHOSPHATE
  2. MOVICOL [Concomitant]
     Active Substance: POLYETHYLENE GLYCOL 3350\POTASSIUM CHLORIDE\SODIUM BICARBONATE\SODIUM CHLORIDE
  3. NOVORAPID [Concomitant]
     Active Substance: INSULIN ASPART
  4. IMUREL                             /00001501/ [Concomitant]
     Active Substance: AZATHIOPRINE SODIUM
  5. SOVALDI [Suspect]
     Active Substance: SOFOSBUVIR
     Indication: CHRONIC HEPATITIS C
     Dosage: 400 MG, QD
     Route: 048
     Dates: start: 201402, end: 201408
  6. RIBAVIRIN. [Suspect]
     Active Substance: RIBAVIRIN
     Indication: CHRONIC HEPATITIS C
     Dosage: 1200 MG, QD
     Route: 048
     Dates: start: 201402, end: 201408
  7. KARDEGIC [Concomitant]
     Active Substance: ASPIRIN DL-LYSINE
  8. TEMERIT DUO [Concomitant]
     Active Substance: HYDROCHLOROTHIAZIDE\NEBIVOLOL HYDROCHLORIDE
  9. LASILIX FAIBLE [Concomitant]
     Active Substance: FUROSEMIDE
  10. TAHOR [Concomitant]
     Active Substance: ATORVASTATIN CALCIUM
  11. PHYSIOTENS [Concomitant]
     Active Substance: MOXONIDINE
  12. NOVOMIX [Concomitant]
     Active Substance: INSULIN ASPART
  13. JANUVIA [Concomitant]
     Active Substance: SITAGLIPTIN PHOSPHATE
  14. CALCIFORTE                         /08576401/ [Concomitant]
  15. SPIRONOLACTONE. [Concomitant]
     Active Substance: SPIRONOLACTONE
  16. LANTUS [Concomitant]
     Active Substance: INSULIN GLARGINE
  17. CORTANCYL [Concomitant]
     Active Substance: PREDNISONE

REACTIONS (4)
  - Hepatocellular injury [Not Recovered/Not Resolved]
  - Drug ineffective [Not Recovered/Not Resolved]
  - Hepatitis C [Not Recovered/Not Resolved]
  - Hepatitis C RNA positive [Not Recovered/Not Resolved]

NARRATIVE: CASE EVENT DATE: 20140910
